FAERS Safety Report 25992404 (Version 1)
Quarter: 2025Q4

REPORT INFORMATION
  Report Type: Spontaneous
  Country: US (occurrence: None)
  Receive Date: 20251103
  Receipt Date: 20251103
  Transmission Date: 20260118
  Serious: Yes (Other)
  Sender: FDA-CTU
  Company Number: None

PATIENT
  Age: 40 Year
  Sex: Male
  Weight: 82.8 kg

DRUGS (4)
  1. CABOTEGRAVIR [Suspect]
     Active Substance: CABOTEGRAVIR
     Indication: Prophylaxis against HIV infection
     Dosage: OTHER FREQUENCY : 1 INJ. Q8WKS;?
     Route: 030
     Dates: start: 20230324, end: 20250725
  2. Vitamin B-6 25mg tablet [Concomitant]
  3. Vitamin D (Ergocalciferol) 1.25 mg (50,000 IU) capsule [Concomitant]
  4. IBUPROFEN [Concomitant]
     Active Substance: IBUPROFEN

REACTIONS (8)
  - Therapy cessation [None]
  - Paraesthesia [None]
  - Hypoaesthesia [None]
  - Hypoaesthesia [None]
  - Pain [None]
  - Chills [None]
  - Chest pain [None]
  - Inability to afford medication [None]

NARRATIVE: CASE EVENT DATE: 20251030
